FAERS Safety Report 16157771 (Version 1)
Quarter: 2019Q2

REPORT INFORMATION
  Report Type: Spontaneous
  Country: PL (occurrence: PL)
  Receive Date: 20190404
  Receipt Date: 20190404
  Transmission Date: 20190711
  Serious: Yes (Life-Threatening, Hospitalization)
  Sender: FDA-Public Use
  Company Number: PL-MYLANLABS-2019M1030902

PATIENT
  Age: 31 Year
  Sex: Female
  Weight: 60 kg

DRUGS (12)
  1. DOPAMINE [Suspect]
     Active Substance: DOPAMINE\DOPAMINE HYDROCHLORIDE
     Indication: POLYURIA
     Dosage: UNK (INFUSION)
  2. DOBUTAMINE [Suspect]
     Active Substance: DOBUTAMINE\DOBUTAMINE HYDROCHLORIDE
     Indication: CARDIOVASCULAR DISORDER
     Dosage: UNK (INFUSION)
  3. EPINEPHRINE. [Suspect]
     Active Substance: EPINEPHRINE
     Indication: CARDIOVASCULAR DISORDER
     Dosage: UNK (INFUSION)
  4. ALBUMIN [Concomitant]
     Active Substance: ALBUMIN HUMAN
     Indication: HYPOALBUMINAEMIA
     Dosage: UNK (INFUSIONS)
  5. PLASMA [Concomitant]
     Active Substance: HUMAN PLASMA
     Dosage: UNK
  6. CIPROFLOXACIN. [Suspect]
     Active Substance: CIPROFLOXACIN
     Indication: ANTIBIOTIC THERAPY
     Dosage: UNK
  7. FUROSEMIDE. [Suspect]
     Active Substance: FUROSEMIDE
     Indication: POLYURIA
     Dosage: UNK (FRACTIONATED FUROSEMIDE DOSES)
  8. ENOXAPARIN SODIUM. [Suspect]
     Active Substance: ENOXAPARIN SODIUM
     Indication: PROPHYLAXIS
     Dosage: UNK
  9. MEROPENEM. [Suspect]
     Active Substance: MEROPENEM
     Indication: EVIDENCE BASED TREATMENT
     Dosage: UNK
  10. MEROPENEM. [Suspect]
     Active Substance: MEROPENEM
     Indication: ANTIBIOTIC THERAPY
  11. NOREPINEPHRINE. [Suspect]
     Active Substance: NOREPINEPHRINE
     Indication: CARDIOVASCULAR DISORDER
     Dosage: UNK (INFUSION)
  12. DIPRIVAN [Suspect]
     Active Substance: PROPOFOL
     Indication: SEDATION
     Dosage: UNK (INFUSION)
     Route: 042

REACTIONS (2)
  - Drug ineffective [Unknown]
  - Maternal exposure during pregnancy [Unknown]
